FAERS Safety Report 5333799-0 (Version None)
Quarter: 2007Q2

REPORT INFORMATION
  Report Type: 
  Country: None (occurrence: None)
  Receive Date: 20070308
  Receipt Date: 20061106
  Transmission Date: 20071010
  Serious: No
  Sender: FDA-Public Use
  Company Number: 2006-BP-11510BP

PATIENT
  Sex: Female

DRUGS (9)
  1. SPIRIVA [Suspect]
     Indication: CHRONIC OBSTRUCTIVE PULMONARY DISEASE
     Dosage: 18 MCG (18 MCG, 1 IN 1 D), IH
     Route: 055
     Dates: start: 20060101, end: 20060929
  2. COZAAR [Suspect]
     Indication: HYPERTENSION
     Dosage: 100 MG, PO
     Route: 048
  3. VITAMIN D [Concomitant]
  4. CARDIZEM [Concomitant]
  5. INSULIN (INSULIN) [Concomitant]
  6. BUMEX [Concomitant]
  7. ASPIRIN [Concomitant]
  8. ALBUTEROL [Concomitant]
  9. LEXAPRO [Concomitant]

REACTIONS (4)
  - DYSPHAGIA [None]
  - INTRACRANIAL ANEURYSM [None]
  - PHARYNGEAL OEDEMA [None]
  - PYREXIA [None]
